FAERS Safety Report 10163571 (Version 1)
Quarter: 2014Q2

REPORT INFORMATION
  Report Type: Report from Study
  Country: US (occurrence: US)
  Receive Date: 20140509
  Receipt Date: 20140509
  Transmission Date: 20141212
  Serious: Yes (Hospitalization)
  Sender: FDA-Public Use
  Company Number: US-JNJFOC-20140419236

PATIENT
  Age: 50 Year
  Sex: Female
  Weight: 82 kg

DRUGS (9)
  1. OXYCODONE/APAP [Suspect]
     Indication: PRODUCT USED FOR UNKNOWN INDICATION
     Route: 048
  2. ALPRAZOLAM [Suspect]
     Indication: PRODUCT USED FOR UNKNOWN INDICATION
     Route: 048
  3. FLUCONAZOLE [Concomitant]
     Route: 065
  4. FLUOXETINE [Concomitant]
     Route: 065
  5. SPIRIVA [Concomitant]
     Route: 065
  6. ATORVASTATIN [Concomitant]
     Route: 065
  7. LISINOPRIL [Concomitant]
     Route: 065
  8. ALPRAZOLAM [Concomitant]
     Route: 065
  9. PROMETHAZINE [Concomitant]
     Route: 065

REACTIONS (6)
  - Mental impairment [Recovered/Resolved]
  - Hypotension [Unknown]
  - Acute respiratory distress syndrome [Unknown]
  - Renal failure acute [Unknown]
  - Overdose [Unknown]
  - Hypovolaemia [Unknown]
